FAERS Safety Report 10672669 (Version 1)
Quarter: 2014Q4

REPORT INFORMATION
  Report Type: Spontaneous
  Country: FR (occurrence: FR)
  Receive Date: 20141223
  Receipt Date: 20141223
  Transmission Date: 20150529
  Serious: Yes (Life-Threatening, Hospitalization, Other)
  Sender: FDA-Public Use
  Company Number: FR-ASTRAZENECA-2014SE97873

PATIENT
  Age: 54 Year
  Sex: Female

DRUGS (5)
  1. LARGACTIL [Concomitant]
     Active Substance: CHLORPROMAZINE
     Dates: end: 201412
  2. XEROQUEL SR [Suspect]
     Active Substance: QUETIAPINE FUMARATE
     Indication: DEPRESSION
     Route: 048
     Dates: start: 2014, end: 20141212
  3. XEROQUEL SR [Suspect]
     Active Substance: QUETIAPINE FUMARATE
     Indication: DEPRESSION
     Route: 048
     Dates: start: 20141212, end: 201412
  4. NORSET [Concomitant]
     Active Substance: MIRTAZAPINE
     Dates: end: 201412
  5. ANAFRANIL [Concomitant]
     Active Substance: CLOMIPRAMINE HYDROCHLORIDE
     Dates: end: 201412

REACTIONS (4)
  - Rhabdomyolysis [Recovered/Resolved]
  - Hepatitis [Unknown]
  - Suicide attempt [Recovered/Resolved]
  - Cholestasis [Unknown]

NARRATIVE: CASE EVENT DATE: 2014
